FAERS Safety Report 4615276-5 (Version None)
Quarter: 2005Q1

REPORT INFORMATION
  Report Type: 
  Country: None (occurrence: None)
  Receive Date: 20050317
  Receipt Date: 20050303
  Transmission Date: 20050727
  Serious: Yes (Hospitalization)
  Sender: FDA-Public Use
  Company Number: 6013542F

PATIENT
  Age: 49 Year
  Sex: Female

DRUGS (1)
  1. NIASPAN [Suspect]
     Indication: HYPERLIPIDAEMIA
     Dosage: 500 MG QD PO
     Route: 048
     Dates: start: 20041001, end: 20041210

REACTIONS (6)
  - ANOREXIA [None]
  - DERMATITIS ALLERGIC [None]
  - DIARRHOEA [None]
  - FATIGUE [None]
  - HEPATITIS TOXIC [None]
  - VOMITING [None]
